FAERS Safety Report 9700800 (Version 2)
Quarter: 2013Q4

REPORT INFORMATION
  Report Type: Spontaneous
  Country: DK (occurrence: None)
  Receive Date: 20131119
  Receipt Date: 20131119
  Transmission Date: 20140711
  Serious: Yes (Disabling)
  Sender: FDA-Public Use
  Company Number: E2B_7248597

PATIENT
  Age: 58 Year
  Sex: Female

DRUGS (5)
  1. LEVOTHYROXINE SODIUM [Suspect]
     Indication: AUTOIMMUNE THYROIDITIS
     Dosage: 50-100 MIKROGRAM DAGLIG ( 1 IN 1 D)
     Route: 048
     Dates: start: 20110716, end: 20130715
  2. LEVOTHYROXINE SODIUM [Suspect]
     Indication: NAUSEA
     Dosage: 50-100 MIKROGRAM DAGLIG ( 1 IN 1 D)
     Route: 048
     Dates: start: 20110716, end: 20130715
  3. LEVOTHYROXINE SODIUM [Suspect]
     Dosage: 50-100 MIKROGRAM DAGLIG ( 1 IN 1 D)
     Route: 048
     Dates: start: 20110716, end: 20130715
  4. LEVOTHYROXINE SODIUM [Suspect]
     Dosage: 50-100 MIKROGRAM DAGLIG ( 1 IN 1 D)
     Route: 048
     Dates: start: 20110716, end: 20130715
  5. LEVOTHYROXINE SODIUM [Suspect]
     Dosage: 50-100 MIKROGRAM DAGLIG ( 1 IN 1 D)
     Route: 048
     Dates: start: 20110716, end: 20130715

REACTIONS (4)
  - Nausea [None]
  - Abdominal pain [None]
  - Tremor [None]
  - Heart rate increased [None]
